FAERS Safety Report 16621672 (Version 1)
Quarter: 2019Q3

REPORT INFORMATION
  Report Type: Spontaneous
  Country: FR (occurrence: FR)
  Receive Date: 20190723
  Receipt Date: 20190723
  Transmission Date: 20191004
  Serious: Yes (Other)
  Sender: FDA-Public Use
  Company Number: FR-TEVA-2019-FR-1080528

PATIENT
  Age: 41 Year
  Sex: Male

DRUGS (2)
  1. OFLOXACINE [Suspect]
     Active Substance: OFLOXACIN
     Indication: PROSTATITIS ESCHERICHIA COLI
     Dosage: 400 MILLIGRAM DAILY;
     Route: 048
     Dates: start: 20181201, end: 20181218
  2. CIPROFLOXACINE [Suspect]
     Active Substance: CIPROFLOXACIN
     Indication: PROSTATITIS ESCHERICHIA COLI
     Dosage: 1000 MILLIGRAM DAILY;
     Route: 048
     Dates: start: 20181129, end: 20181201

REACTIONS (1)
  - Pudendal canal syndrome [Recovering/Resolving]

NARRATIVE: CASE EVENT DATE: 201812
